FAERS Safety Report 7916463-0 (Version None)
Quarter: 2011Q4

REPORT INFORMATION
  Report Type: 
  Country: None (occurrence: None)
  Receive Date: 20111114
  Receipt Date: 20111028
  Transmission Date: 20120403
  Serious: Yes (Other)
  Sender: FDA-Public Use
  Company Number: FK201102483

PATIENT
  Age: 68 Year
  Sex: Female

DRUGS (6)
  1. BIMATOPROST (BIMATOPROST) [Concomitant]
  2. LIDOCAINE [Suspect]
     Indication: LOCAL ANAESTHESIA
  3. METHAZOLAMIDE (METHAZOLAMIDE) [Concomitant]
  4. DORZOLAMIDE HYDROCHLORIDE AND TIMOLOL MALEATE [Concomitant]
  5. BUPIVACAINE (MANUFACTURER UNKNOWN) (BUPIVACAINE) (BUPIVACAINE) [Suspect]
     Indication: LOCAL ANAESTHESIA
  6. BRIMONIDINE TARTRATE [Concomitant]

REACTIONS (2)
  - BLINDNESS [None]
  - CORNEAL PERFORATION [None]
